FAERS Safety Report 7434513-5 (Version None)
Quarter: 2011Q2

REPORT INFORMATION
  Report Type: 
  Country: None (occurrence: None)
  Receive Date: 20110414
  Receipt Date: 20110210
  Transmission Date: 20111010
  Serious: Yes (Hospitalization)
  Sender: FDA-Public Use
  Company Number: UTC-006104

PATIENT
  Age: 55 Year
  Sex: Male

DRUGS (1)
  1. REMODULIN [Suspect]

REACTIONS (4)
  - HEADACHE [None]
  - GASTROENTERITIS [None]
  - FLUSHING [None]
  - PAIN IN EXTREMITY [None]
